FAERS Safety Report 10248293 (Version 2)
Quarter: 2014Q2

REPORT INFORMATION
  Report Type: Spontaneous
  Country: CA (occurrence: CA)
  Receive Date: 20140620
  Receipt Date: 20140620
  Transmission Date: 20141212
  Serious: Yes (Other)
  Sender: FDA-Public Use
  Company Number: CA-ROCHE-1421033

PATIENT
  Age: 13 Year
  Sex: Female

DRUGS (3)
  1. TRETINOIN [Suspect]
     Indication: ACUTE PROMYELOCYTIC LEUKAEMIA
     Route: 065
  2. TRETINOIN [Suspect]
     Dosage: FOR 15 D EVERY 3 MONTHS
     Route: 065
  3. IDARUBICIN [Concomitant]
     Indication: ACUTE PROMYELOCYTIC LEUKAEMIA

REACTIONS (4)
  - Headache [Recovered/Resolved]
  - Retinal haemorrhage [Recovered/Resolved]
  - CSF pressure increased [Recovered/Resolved]
  - Papilloedema [Recovered/Resolved]
